FAERS Safety Report 6450488-X (Version None)
Quarter: 2009Q4

REPORT INFORMATION
  Report Type: 
  Country: None (occurrence: None)
  Receive Date: 20091123
  Receipt Date: 20091111
  Transmission Date: 20100525
  Serious: Yes (Other)
  Sender: FDA-Public Use
  Company Number: PHEH2009US15638

PATIENT
  Sex: Female

DRUGS (3)
  1. CLOZARIL [Suspect]
     Indication: SCHIZOAFFECTIVE DISORDER
     Dosage: 650 MG
     Route: 048
     Dates: start: 20060101
  2. CLOZARIL [Suspect]
     Dosage: UNK
  3. LITHIUM [Concomitant]

REACTIONS (2)
  - EOSINOPENIA [None]
  - FATIGUE [None]
